FAERS Safety Report 20645321 (Version 1)
Quarter: 2022Q1

REPORT INFORMATION
  Report Type: Spontaneous
  Country: AU (occurrence: AU)
  Receive Date: 20220328
  Receipt Date: 20220328
  Transmission Date: 20220423
  Serious: Yes (Other)
  Sender: FDA-Public Use
  Company Number: AU-TEVA-2022-AU-2020558

PATIENT
  Age: 42 Year
  Sex: Male

DRUGS (1)
  1. AJOVY [Suspect]
     Active Substance: FREMANEZUMAB-VFRM
     Indication: Migraine
     Dosage: THIRD DOSE IN MARCH 2022
     Route: 065
     Dates: start: 20220117

REACTIONS (9)
  - Blood pressure increased [Not Recovered/Not Resolved]
  - Eye disorder [Not Recovered/Not Resolved]
  - Near death experience [Unknown]
  - Gait inability [Unknown]
  - Speech disorder [Unknown]
  - Therapeutic product effect incomplete [Unknown]
  - Adverse event [Unknown]
  - Therapeutic response unexpected [Unknown]
  - Incorrect dose administered [Unknown]

NARRATIVE: CASE EVENT DATE: 20220101
